FAERS Safety Report 4912079-9 (Version None)
Quarter: 2006Q1

REPORT INFORMATION
  Report Type: 
  Country: None (occurrence: None)
  Receive Date: 20060215
  Receipt Date: 20060210
  Transmission Date: 20060701
  Serious: Yes (Death, Hospitalization)
  Sender: FDA-Public Use
  Company Number: PHNU2006PL00880

PATIENT

DRUGS (1)
  1. EXELON [Suspect]
     Dosage: UNKNOWN
     Route: 048

REACTIONS (3)
  - BRADYCARDIA [None]
  - RESPIRATORY FAILURE [None]
  - SHOCK [None]
